FAERS Safety Report 9361465 (Version 2)
Quarter: 2013Q3

REPORT INFORMATION
  Report Type: Spontaneous
  Country: DK (occurrence: JP)
  Receive Date: 20130621
  Receipt Date: 20130719
  Transmission Date: 20140515
  Serious: Yes (Hospitalization, Other)
  Sender: FDA-Public Use
  Company Number: JP-FRI-1000043168

PATIENT
  Age: 82 Year
  Sex: Male
  Weight: 50 kg

DRUGS (17)
  1. LEXAPRO [Suspect]
     Indication: DEPRESSION
     Dosage: 10 MG
     Route: 048
     Dates: start: 20121205, end: 20121221
  2. MEMARY [Concomitant]
     Indication: DEMENTIA ALZHEIMER^S TYPE
     Dosage: 5 MG
     Route: 048
     Dates: start: 20120726, end: 20121221
  3. MEMARY [Concomitant]
     Indication: SUICIDE ATTEMPT
     Dosage: 6 DF
     Route: 048
     Dates: start: 20121101, end: 20121101
  4. MEMARY [Concomitant]
     Dosage: 10 MG
     Route: 048
     Dates: start: 20121108
  5. MEMARY [Concomitant]
     Dosage: 5 MG
     Route: 048
     Dates: start: 20121205, end: 20121221
  6. DESYREL [Concomitant]
     Indication: DEMENTIA ALZHEIMER^S TYPE
     Dosage: 50 MG
     Route: 048
     Dates: start: 20120726
  7. DESYREL [Concomitant]
     Indication: SUICIDE ATTEMPT
     Dosage: 6 DF
     Route: 048
     Dates: start: 20121101, end: 20121101
  8. DESYREL [Concomitant]
     Dosage: 25 MG
     Route: 048
     Dates: start: 20121205, end: 20121221
  9. REZALTAS [Concomitant]
     Route: 048
  10. SELUMITO [Concomitant]
     Route: 048
  11. LOXOPROFEN [Concomitant]
  12. ALESION [Concomitant]
     Route: 048
  13. OINTMENT BASES [Concomitant]
     Route: 061
  14. VESICARE [Concomitant]
     Indication: HYPERTONIC BLADDER
     Route: 048
  15. DEPAS [Concomitant]
     Indication: MUSCLE TIGHTNESS
     Route: 048
  16. AMOBAN [Concomitant]
     Route: 048
  17. LENDORMIN [Concomitant]
     Route: 048

REACTIONS (7)
  - Serotonin syndrome [Recovering/Resolving]
  - Treatment noncompliance [Not Recovered/Not Resolved]
  - Decubitus ulcer [Not Recovered/Not Resolved]
  - Poriomania [Not Recovered/Not Resolved]
  - Urinary incontinence [Not Recovered/Not Resolved]
  - Pneumonia aspiration [Not Recovered/Not Resolved]
  - Apathy [Not Recovered/Not Resolved]
